FAERS Safety Report 8992840 (Version 1)
Quarter: 2013Q1

REPORT INFORMATION
  Report Type: Spontaneous
  Country: US (occurrence: US)
  Receive Date: 20130102
  Receipt Date: 20130102
  Transmission Date: 20140127
  Serious: Yes (Hospitalization)
  Sender: FDA-Public Use
  Company Number: US-BAYER-2012-136319

PATIENT
  Age: 29 Year
  Sex: Female

DRUGS (5)
  1. YASMIN [Suspect]
  2. GUAIFENESIN/PSEUDOEPHEDRINE ER [Concomitant]
     Dosage: TAKE ONE TABLET EVERY 12 HOURS
     Route: 048
  3. TUSSIONEX [Concomitant]
     Dosage: TAKE ONE TEASPOON EVERY 12 HOURS
     Route: 048
  4. METFORMIN [Concomitant]
     Dosage: 500 MG, TID
     Route: 048
  5. PREMARIN [Concomitant]

REACTIONS (1)
  - Pulmonary embolism [None]
